FAERS Safety Report 6085274-6 (Version None)
Quarter: 2009Q1

REPORT INFORMATION
  Report Type: 
  Country: None (occurrence: None)
  Receive Date: 20090220
  Receipt Date: 20090212
  Transmission Date: 20090719
  Serious: Yes (Life-Threatening)
  Sender: FDA-Public Use
  Company Number: JP-ABBOTT-09P-087-0557942-00

PATIENT
  Age: 73 Year
  Sex: Male

DRUGS (11)
  1. LEUPROLIDE ACETATE [Suspect]
     Indication: PROSTATE CANCER STAGE II
     Route: 058
     Dates: start: 20070227
  2. BLOPRESS [Concomitant]
     Indication: HYPERTENSION
     Route: 048
     Dates: end: 20081215
  3. CASODEX [Concomitant]
     Indication: PROSTATE CANCER STAGE II
     Route: 048
  4. LIPITOR [Concomitant]
     Indication: HYPERLIPIDAEMIA
     Route: 048
  5. HARNAL D [Concomitant]
     Indication: BENIGN PROSTATIC HYPERPLASIA
     Route: 048
  6. ASPIRIN [Concomitant]
     Indication: CEREBRAL INFARCTION
     Route: 048
  7. ASPIRIN [Concomitant]
     Indication: ANGINA PECTORIS
  8. FRANDOL [Concomitant]
     Indication: ANGINA PECTORIS
     Route: 048
     Dates: end: 20081217
  9. DEPAKENE [Concomitant]
     Indication: CEREBRAL INFARCTION
     Route: 048
  10. ARTIST [Concomitant]
     Indication: HYPERTENSION
     Route: 048
     Dates: start: 20081228
  11. AMLODIN [Concomitant]
     Indication: HYPERTENSION
     Route: 048
     Dates: start: 20090206

REACTIONS (2)
  - AORTIC ANEURYSM [None]
  - GASTRIC ULCER [None]
